FAERS Safety Report 14751212 (Version 3)
Quarter: 2018Q2

REPORT INFORMATION
  Report Type: Report from Study
  Country: CA (occurrence: CA)
  Receive Date: 20180412
  Receipt Date: 20180517
  Transmission Date: 20180711
  Serious: Yes (Hospitalization)
  Sender: FDA-Public Use
  Company Number: PHHY2018CA022957

PATIENT
  Sex: Male

DRUGS (1)
  1. REVOLADE [Suspect]
     Active Substance: ELTROMBOPAG
     Indication: IMMUNE THROMBOCYTOPENIC PURPURA
     Dosage: 50 MG, UNK
     Route: 048
     Dates: start: 20180127

REACTIONS (7)
  - Platelet count abnormal [Unknown]
  - Seizure [Unknown]
  - Cerebrovascular accident [Unknown]
  - Monoplegia [Unknown]
  - Confusional state [Unknown]
  - Cerebral haemorrhage [Unknown]
  - Aphasia [Unknown]
